FAERS Safety Report 21030992 (Version 2)
Quarter: 2022Q3

REPORT INFORMATION
  Report Type: Report from Study
  Country: CR (occurrence: CR)
  Receive Date: 20220701
  Receipt Date: 20220705
  Transmission Date: 20221027
  Serious: No
  Sender: FDA-Public Use
  Company Number: CR-NOVARTISPH-NVSC2021CR090667

PATIENT
  Sex: Female

DRUGS (1)
  1. SECUKINUMAB [Suspect]
     Active Substance: SECUKINUMAB
     Indication: Ankylosing spondylitis
     Dosage: 150 MG, QMO
     Route: 058
     Dates: start: 20200220

REACTIONS (20)
  - Dyspnoea [Unknown]
  - Discomfort [Unknown]
  - Skin infection [Not Recovered/Not Resolved]
  - Decreased immune responsiveness [Unknown]
  - Eye infection [Not Recovered/Not Resolved]
  - Pain [Recovered/Resolved]
  - Anxiety [Not Recovered/Not Resolved]
  - Inflammation [Unknown]
  - Pustule [Unknown]
  - Gastrointestinal disorder [Unknown]
  - Spinal pain [Unknown]
  - Illness [Unknown]
  - Cough [Recovering/Resolving]
  - Somnolence [Unknown]
  - Fatigue [Unknown]
  - Muscle rigidity [Unknown]
  - Chest pain [Unknown]
  - Feeling abnormal [Unknown]
  - Allergy to metals [Unknown]
  - Drug effect less than expected [Unknown]
